FAERS Safety Report 19749179 (Version 1)
Quarter: 2021Q3

REPORT INFORMATION
  Report Type: Spontaneous
  Country: US (occurrence: US)
  Receive Date: 20210826
  Receipt Date: 20210826
  Transmission Date: 20211014
  Serious: Yes (Death, Other)
  Sender: FDA-Public Use
  Company Number: US-SA-2021SA281181

PATIENT
  Sex: Female

DRUGS (1)
  1. DULCOLAX SOFT CHEWS MIXED BERRY [Suspect]
     Active Substance: MAGNESIUM HYDROXIDE

REACTIONS (3)
  - Neoplasm malignant [Unknown]
  - Death [Fatal]
  - Constipation [Unknown]
